FAERS Safety Report 9342959 (Version 2)
Quarter: 2014Q1

REPORT INFORMATION
  Report Type: Spontaneous
  Country: US (occurrence: US)
  Receive Date: 20130611
  Receipt Date: 20140218
  Transmission Date: 20141002
  Serious: Yes (Hospitalization)
  Sender: FDA-Public Use
  Company Number: US-B.I. PHARMACEUTICALS,INC./RIDGEFIELD-2013-BI-16104BP

PATIENT
  Sex: Female
  Weight: 75.3 kg

DRUGS (13)
  1. PRADAXA [Suspect]
     Indication: CEREBROVASCULAR ACCIDENT PROPHYLAXIS
     Dosage: 300 MG
     Route: 048
     Dates: start: 20101206, end: 20111209
  2. PRADAXA [Suspect]
     Indication: THROMBOSIS PROPHYLAXIS
  3. PRADAXA [Suspect]
     Indication: ATRIAL FIBRILLATION
  4. ZESTRIL [Concomitant]
     Dosage: 40 MG
     Route: 048
  5. TYLENOL [Concomitant]
     Indication: PYREXIA
     Route: 054
  6. TYLENOL [Concomitant]
     Route: 048
  7. ZOCOR [Concomitant]
     Dosage: 80 MG
     Route: 048
  8. TOPROL XL [Concomitant]
     Dosage: 25 MG
     Route: 048
  9. MAG-OX [Concomitant]
     Dosage: 400 MG
     Route: 048
  10. FUROSEMIDE [Concomitant]
     Dosage: 80 MG
     Route: 048
  11. PROTONIX [Concomitant]
     Dosage: 40 MG
     Route: 048
  12. ASPIRIN [Concomitant]
     Dosage: 81 MG
     Route: 048
  13. SPIRONOLACTONE [Concomitant]
     Dosage: 25 MG
     Route: 048

REACTIONS (6)
  - Haemorrhagic arteriovenous malformation [Recovered/Resolved]
  - Anaemia [Unknown]
  - Coagulopathy [Recovered/Resolved]
  - Renal failure acute [Unknown]
  - Upper gastrointestinal haemorrhage [Recovered/Resolved]
  - Upper gastrointestinal haemorrhage [Recovered/Resolved]
